FAERS Safety Report 14091641 (Version 1)
Quarter: 2017Q4

REPORT INFORMATION
  Report Type: Spontaneous
  Country: BR (occurrence: BR)
  Receive Date: 20171016
  Receipt Date: 20171016
  Transmission Date: 20180321
  Serious: Yes (Other)
  Sender: FDA-Public Use
  Company Number: BR-TORRENT-00004191

PATIENT
  Age: 55 Year
  Sex: Female

DRUGS (1)
  1. ROSUVASTATIN CALCIUM. [Suspect]
     Active Substance: ROSUVASTATIN CALCIUM

REACTIONS (6)
  - Tonsillitis [Unknown]
  - Sinusitis [Unknown]
  - Rhinitis [Unknown]
  - Pain [Unknown]
  - Product substitution issue [Unknown]
  - Malaise [Unknown]
